FAERS Safety Report 5014312-4 (Version None)
Quarter: 2006Q2

REPORT INFORMATION
  Report Type: 
  Country: None (occurrence: None)
  Receive Date: 20060414
  Receipt Date: 20060116
  Transmission Date: 20061013
  Serious: No
  Sender: FDA-Public Use
  Company Number: 2005SP003827

PATIENT
  Age: 47 Year
  Sex: Male
  Weight: 92.5338 kg

DRUGS (2)
  1. LUNESTA [Suspect]
     Indication: INSOMNIA
     Dosage: 2 MG;HS;ORAL
     Route: 048
     Dates: start: 20051026, end: 20051026
  2. CRESTOR [Concomitant]

REACTIONS (2)
  - NAUSEA [None]
  - NIGHTMARE [None]
